FAERS Safety Report 10429915 (Version 3)
Quarter: 2014Q4

REPORT INFORMATION
  Report Type: Spontaneous
  Country: US (occurrence: US)
  Receive Date: 20140904
  Receipt Date: 20141013
  Transmission Date: 20150528
  Serious: Yes (Other)
  Sender: FDA-Public Use
  Company Number: US-PFIZER INC-2014242540

PATIENT
  Age: 70 Year
  Sex: Female
  Weight: 82.54 kg

DRUGS (13)
  1. SIMVASTATIN. [Concomitant]
     Active Substance: SIMVASTATIN
     Indication: BLOOD CHOLESTEROL
     Dosage: 20 MG, 1X/DAY
  2. TIZANIDINE (TIZANIDINE) [Concomitant]
     Active Substance: TIZANIDINE
     Dosage: 2 MG, 1X/DAY
  3. DIOVAN [Concomitant]
     Active Substance: VALSARTAN
     Dosage: 160 MG, 1X/DAY
  4. OMEGA 3 [Concomitant]
     Active Substance: OMEGA-3 FATTY ACIDS
     Dosage: 2 DF, 2X/DAY
  5. ESTRIOL VAGINAL CREAM [Concomitant]
     Dosage: UNK
  6. METFORMIN [Concomitant]
     Active Substance: METFORMIN HYDROCHLORIDE
     Dosage: 1000 MG, 2X/DAY
  7. BIESTROGEN [Concomitant]
     Dosage: 1 MG, 1X/DAY
  8. DEHYDROEPIANDROSTERONE (DHEA) [Concomitant]
     Indication: NUTRITIONAL SUPPLEMENTATION
     Dosage: 10 MG, 1X/DAY
  9. AMITRIPTYLINE [Concomitant]
     Active Substance: AMITRIPTYLINE
     Dosage: 75 MG, 1X/DAY
  10. LANTUS [Concomitant]
     Active Substance: INSULIN GLARGINE
     Dosage: 60 IU, DAILY
  11. PROGESTERONE. [Concomitant]
     Active Substance: PROGESTERONE
     Dosage: 100 MG, 1X/DAY
  12. LYRICA [Suspect]
     Active Substance: PREGABALIN
     Indication: DIABETIC NEUROPATHY
     Dosage: 150 MG, 3X/DAY
     Route: 048
     Dates: start: 2008
  13. PREGNENOLONE [Concomitant]
     Active Substance: PREGNENOLONE
     Indication: NUTRITIONAL SUPPLEMENTATION
     Dosage: 10 MG, 1X/DAY

REACTIONS (5)
  - Peripheral arterial occlusive disease [Unknown]
  - Pain in extremity [Unknown]
  - Muscular weakness [Unknown]
  - Arthropathy [Unknown]
  - Blood glucose increased [Unknown]

NARRATIVE: CASE EVENT DATE: 20140729
